FAERS Safety Report 11516718 (Version 1)
Quarter: 2015Q3

REPORT INFORMATION
  Report Type: Report from Study
  Country: VE (occurrence: VE)
  Receive Date: 20150917
  Receipt Date: 20150917
  Transmission Date: 20151125
  Serious: Yes (Other)
  Sender: FDA-Public Use
  Company Number: PHHY2015VE111567

PATIENT
  Sex: Male

DRUGS (10)
  1. SANDIMMUN NEORAL [Suspect]
     Active Substance: CYCLOSPORINE
     Indication: NEPHROTIC SYNDROME
     Dosage: 50 MG, QD
     Route: 048
     Dates: start: 201501
  2. EPRA [Concomitant]
     Indication: BLOOD TRIGLYCERIDES ABNORMAL
  3. MYFORTIC [Suspect]
     Active Substance: MYCOPHENOLATE SODIUM
     Indication: NEPHROTIC SYNDROME
     Dosage: 360 MG, UNK
     Route: 048
     Dates: start: 201407, end: 2015
  4. B COMPLEX                          /00322001/ [Concomitant]
     Indication: PRODUCT USED FOR UNKNOWN INDICATION
     Route: 065
  5. PREDNISONE. [Concomitant]
     Active Substance: PREDNISONE
     Indication: NEPHROTIC SYNDROME
     Dosage: 40 MG, QOD
     Route: 065
  6. ENALAPRIL [Concomitant]
     Active Substance: ENALAPRIL
     Indication: HYPERTENSION
     Route: 065
  7. ASPIRIN. [Concomitant]
     Active Substance: ASPIRIN
     Indication: RASH
     Dosage: 81 MG, QOD
     Route: 065
  8. LOSARTAN POTASSIUM. [Concomitant]
     Active Substance: LOSARTAN POTASSIUM
     Indication: HYPERTENSION
     Dosage: 12.5 MG, 3 DAILY
     Route: 065
  9. EPRA [Concomitant]
     Indication: BLOOD CHOLESTEROL ABNORMAL
     Dosage: 600 MG, QD
     Route: 065
  10. FOLIC ACID. [Concomitant]
     Active Substance: FOLIC ACID
     Indication: PRODUCT USED FOR UNKNOWN INDICATION
     Dosage: UNK
     Route: 065

REACTIONS (5)
  - Nephrotic syndrome [Not Recovered/Not Resolved]
  - Generalised oedema [Not Recovered/Not Resolved]
  - Product use issue [Unknown]
  - Immunosuppressant drug level increased [Not Recovered/Not Resolved]
  - Drug ineffective for unapproved indication [Unknown]
